FAERS Safety Report 8887486 (Version 1)
Quarter: 2012Q4

REPORT INFORMATION
  Report Type: Spontaneous
  Country: US (occurrence: None)
  Receive Date: 20121101
  Receipt Date: 20121101
  Transmission Date: 20130627
  Serious: Yes (Hospitalization)
  Sender: FDA-Public Use
  Company Number: None

PATIENT
  Age: 75 Year
  Sex: Female
  Weight: 92 kg

DRUGS (13)
  1. PRADAXA [Suspect]
     Indication: ATRIAL FIBRILLATION
     Route: 048
  2. COUMADIN [Suspect]
     Indication: ATRIAL FIBRILLATION
     Route: 048
  3. SYNTHROID [Concomitant]
  4. TOPROL XL [Concomitant]
  5. VIT D3 [Concomitant]
  6. MECLIZINE [Concomitant]
  7. ZOCOR [Concomitant]
  8. MAGNESIUS OXIDE [Concomitant]
  9. ZYRTEC [Concomitant]
  10. AMBIEN [Concomitant]
  11. HYDROCODONE/APAP [Concomitant]
  12. HCTZ/TRIAMTERENE [Concomitant]
  13. FLECAINIDE [Concomitant]

REACTIONS (4)
  - Melaena [None]
  - International normalised ratio abnormal [None]
  - Lower gastrointestinal haemorrhage [None]
  - Duodenitis [None]
